FAERS Safety Report 4444483-X (Version None)
Quarter: 2004Q3

REPORT INFORMATION
  Report Type: 
  Country: None (occurrence: None)
  Receive Date: 20040902
  Receipt Date: 20040823
  Transmission Date: 20050211
  Serious: Yes (Hospitalization)
  Sender: FDA-Public Use
  Company Number: 2004US000983

PATIENT
  Age: 8 Year
  Sex: Male

DRUGS (2)
  1. PROGRAF [Suspect]
     Indication: RENAL TRANSPLANT
  2. STEROIDS () INJECTION [Suspect]
     Indication: IMMUNOSUPPRESSION
     Dosage: IV BOLUS
     Route: 040

REACTIONS (2)
  - CYSTITIS [None]
  - PYELONEPHRITIS [None]
